FAERS Safety Report 4866833-2 (Version None)
Quarter: 2005Q4

REPORT INFORMATION
  Report Type: 
  Country: None (occurrence: None)
  Receive Date: 20051222
  Receipt Date: 20051207
  Transmission Date: 20060501
  Serious: Yes (Death)
  Sender: FDA-Public Use
  Company Number: 2005-DE-05355GD

PATIENT
  Sex: 0

DRUGS (2)
  1. LANSOPRAZOLE [Suspect]
     Indication: PROPHYLAXIS AGAINST GASTROINTESTINAL ULCER
     Dosage: 30 MG, ONCE
  2. NAPROXEN [Suspect]
     Dosage: 750 MG (3 TIMES DAILY)

REACTIONS (1)
  - CARDIAC FAILURE CONGESTIVE [None]
